FAERS Safety Report 12539203 (Version 1)
Quarter: 2016Q3

REPORT INFORMATION
  Report Type: Spontaneous
  Country: GB (occurrence: GB)
  Receive Date: 20160708
  Receipt Date: 20160708
  Transmission Date: 20161109
  Serious: Yes (Life-Threatening)
  Sender: FDA-Public Use
  Company Number: GB-TEVA-672102ACC

PATIENT
  Age: 17 Year
  Sex: Male
  Weight: 101 kg

DRUGS (5)
  1. ATRACURIUM [Suspect]
     Active Substance: ATRACURIUM
     Indication: HYPOTONIA
     Route: 042
     Dates: start: 20160614
  2. CETIRIZINE [Concomitant]
     Active Substance: CETIRIZINE HYDROCHLORIDE
  3. PROPOFOL. [Suspect]
     Active Substance: PROPOFOL
     Indication: INDUCTION OF ANAESTHESIA
     Route: 042
     Dates: start: 20160614
  4. SALBUTAMOL [Concomitant]
     Active Substance: ALBUTEROL
  5. FENTANYL. [Suspect]
     Active Substance: FENTANYL
     Indication: ANALGESIC THERAPY
     Route: 042
     Dates: start: 20160614

REACTIONS (2)
  - Rash generalised [Recovering/Resolving]
  - Bronchospasm [Recovering/Resolving]

NARRATIVE: CASE EVENT DATE: 20160614
